FAERS Safety Report 25067019 (Version 1)
Quarter: 2025Q1

REPORT INFORMATION
  Report Type: Spontaneous
  Country: JP (occurrence: JP)
  Receive Date: 20250312
  Receipt Date: 20250312
  Transmission Date: 20250409
  Serious: No
  Sender: UCB
  Company Number: JP-UCBJ-CD202502526UCBPHAPROD

PATIENT

DRUGS (2)
  1. VIMPAT [Suspect]
     Active Substance: LACOSAMIDE
     Indication: Product used for unknown indication
     Route: 048
  2. VIMPAT [Suspect]
     Active Substance: LACOSAMIDE
     Route: 048

REACTIONS (2)
  - Atrioventricular block [Unknown]
  - Bradycardia [Unknown]
